FAERS Safety Report 6600561-8 (Version None)
Quarter: 2010Q1

REPORT INFORMATION
  Report Type: 
  Country: None (occurrence: None)
  Receive Date: 20100224
  Receipt Date: 20100217
  Transmission Date: 20100710
  Serious: Yes (Hospitalization)
  Sender: FDA-Public Use
  Company Number: US-ABBOTT-09P-163-0609692-00

PATIENT
  Sex: Female
  Weight: 65.83 kg

DRUGS (14)
  1. HUMIRA [Suspect]
     Indication: CROHN'S DISEASE
     Route: 058
     Dates: start: 20060101
  2. HUMIRA [Suspect]
     Route: 058
     Dates: start: 20091115
  3. HUMIRA [Suspect]
     Indication: RHEUMATOID ARTHRITIS
  4. PREDNISONE TAB [Concomitant]
     Indication: DRUG USE FOR UNKNOWN INDICATION
     Dosage: 5MG TABLET DIVIDED IN 4 AND TAKES1/4 OF A PILL A DAY
     Route: 048
  5. FUROSEMIDE [Concomitant]
     Indication: FLUID RETENTION
  6. SULFAZINE [Concomitant]
     Indication: DRUG USE FOR UNKNOWN INDICATION
     Route: 048
  7. TORSEMIDE [Concomitant]
     Indication: SWELLING
  8. TRAMAL [Concomitant]
     Indication: DRUG USE FOR UNKNOWN INDICATION
  9. NEXIUM [Concomitant]
     Indication: GASTRIC DISORDER
  10. MAGNESIUM [Concomitant]
     Indication: MUSCLE SPASMS
  11. FAMOTIDINE [Concomitant]
     Indication: GASTRIC DISORDER
  12. LISINOPRIL [Concomitant]
     Indication: HYPERTENSION
  13. M.V.I. [Concomitant]
     Indication: DRUG USE FOR UNKNOWN INDICATION
  14. COUMADIN [Concomitant]
     Indication: ARTHROPATHY

REACTIONS (11)
  - ASTHENIA [None]
  - CHONDROPATHY [None]
  - DRUG DOSE OMISSION [None]
  - GAIT DISTURBANCE [None]
  - GASTROENTERITIS [None]
  - HAEMORRHAGE [None]
  - HYPOKALAEMIA [None]
  - JOINT SWELLING [None]
  - PAIN IN EXTREMITY [None]
  - RHEUMATOID ARTHRITIS [None]
  - THROMBOSIS [None]
